FAERS Safety Report 9026965 (Version 1)
Quarter: 2013Q1

REPORT INFORMATION
  Report Type: Spontaneous
  Country: US (occurrence: US)
  Receive Date: 20130123
  Receipt Date: 20130123
  Transmission Date: 20140127
  Serious: Yes (Hospitalization)
  Sender: FDA-Public Use
  Company Number: US-PFIZER INC-2013023177

PATIENT
  Age: 86 Year
  Sex: Male
  Weight: 95.24 kg

DRUGS (1)
  1. ZYVOX [Suspect]
     Indication: INFECTION
     Dosage: UNKNOWN DOSE, TWO TIMES A DAY
     Route: 048
     Dates: start: 20121022, end: 201210

REACTIONS (3)
  - Electrolyte imbalance [Recovered/Resolved]
  - Malaise [Recovered/Resolved]
  - Ill-defined disorder [Recovered/Resolved]
